FAERS Safety Report 9410021 (Version 1)
Quarter: 2013Q2

REPORT INFORMATION
  Report Type: Spontaneous
  Country: US (occurrence: None)
  Receive Date: 20130610
  Receipt Date: 20130610
  Transmission Date: 20140414
  Serious: Yes (Hospitalization)
  Sender: FDA-Public Use
  Company Number: 2013S1001138

PATIENT
  Age: 61 Year
  Sex: Female

DRUGS (12)
  1. LIVALO (PITAVASTATIN) TABLETS 2 MG [Suspect]
     Indication: CEREBRAL INFARCTION
     Route: 048
     Dates: start: 20121216
  2. NADROPARIN CALCIUM [Concomitant]
  3. RYTMONORM [Concomitant]
  4. DICOLFENAC SODIUM [Concomitant]
  5. NICARDIPINE HYDROCHLORIDE [Concomitant]
  6. FOLIC ACID [Concomitant]
  7. OLMETEC [Concomitant]
  8. VALPROATE SODIUM [Concomitant]
  9. EPERISONE HYDROCHLORIDE [Concomitant]
  10. EFONIDIPINE [Concomitant]
  11. SUCRALFATE [Concomitant]
  12. BISOPROLOL [Concomitant]

REACTIONS (2)
  - Oedema peripheral [None]
  - Deep vein thrombosis [None]
